FAERS Safety Report 7369787 (Version 7)
Quarter: 2014Q1

REPORT INFORMATION
  Report Type: Spontaneous
  Country: US (occurrence: US)
  Receive Date: 20100429
  Receipt Date: 20140207
  Transmission Date: 20141002
  Serious: Yes (Other)
  Sender: FDA-Public Use
  Company Number: US-BIOGENIDEC-2010BI013388

PATIENT
  Age: 48 Year
  Sex: Female

DRUGS (5)
  1. TYSABRI [Suspect]
     Indication: MULTIPLE SCLEROSIS
     Route: 042
     Dates: start: 20091211, end: 20120613
  2. TOPAMAX [Concomitant]
     Indication: CONVULSION PROPHYLAXIS
  3. PERCOCET [Concomitant]
     Indication: MIGRAINE
  4. SOMA [Concomitant]
     Indication: MUSCLE SPASMS
  5. B12 [Concomitant]

REACTIONS (9)
  - Convulsion [Recovered/Resolved]
  - Petit mal epilepsy [Recovered/Resolved]
  - Neuralgia [Not Recovered/Not Resolved]
  - Fatigue [Not Recovered/Not Resolved]
  - Ear infection [Not Recovered/Not Resolved]
  - Loss of consciousness [Recovered/Resolved]
  - Bladder disorder [Not Recovered/Not Resolved]
  - Migraine [Not Recovered/Not Resolved]
  - Colour blindness [Recovered/Resolved]
